FAERS Safety Report 17829384 (Version 1)
Quarter: 2020Q2

REPORT INFORMATION
  Report Type: Spontaneous
  Country: US (occurrence: US)
  Receive Date: 20200527
  Receipt Date: 20200527
  Transmission Date: 20200714
  Serious: Yes (Other)
  Sender: FDA-Public Use
  Company Number: US-SMITH AND NEPHEW, INC-2020SMT00046

PATIENT
  Age: 66 Year
  Sex: Male
  Weight: 75.74 kg

DRUGS (4)
  1. COLLAGENASE SANTYL [Suspect]
     Active Substance: COLLAGENASE CLOSTRIDIUM HISTOLYTICUM
     Indication: SKIN ULCER
     Dosage: UNK, 2X/WEEK, PUTS IT ON MONDAYS, THEY UNCOVER IT ON FRIDAYS AND REPEATS (SO COVERED FOR 4 DAYS)
     Route: 061
     Dates: start: 202004, end: 20200511
  2. UNSPECIFIED MEDICATIONS FOR BLOOD PRESSURE [Concomitant]
  3. UNSPECIFIED MEDICATIONS [Concomitant]
     Active Substance: UNSPECIFIED INGREDIENT
  4. UNSPECIFIED MEDICATIONS FOR BREATHING [Concomitant]

REACTIONS (4)
  - Off label use [Recovered/Resolved]
  - Product use issue [Recovered/Resolved]
  - Wound complication [Not Recovered/Not Resolved]
  - Scratch [Not Recovered/Not Resolved]

NARRATIVE: CASE EVENT DATE: 2020
